FAERS Safety Report 8349710-4 (Version None)
Quarter: 2012Q2

REPORT INFORMATION
  Report Type: 
  Country: None (occurrence: None)
  Receive Date: 20120510
  Receipt Date: 20120509
  Transmission Date: 20120825
  Serious: Yes (Death, Hospitalization)
  Sender: FDA-Public Use
  Company Number: PHHY2012IT020224

PATIENT
  Sex: Male

DRUGS (1)
  1. AFINITOR [Suspect]
     Indication: RENAL CELL CARCINOMA
     Dosage: 10 MG, DAILY
     Route: 048
     Dates: start: 20101004, end: 20101018

REACTIONS (7)
  - NEOPLASM MALIGNANT [None]
  - CACHEXIA [None]
  - MUCOSAL INFLAMMATION [None]
  - STOMATITIS [None]
  - APHTHOUS STOMATITIS [None]
  - NEOPLASM PROGRESSION [None]
  - IMMUNOSUPPRESSION [None]
